FAERS Safety Report 4720821-5 (Version None)
Quarter: 2005Q3

REPORT INFORMATION
  Report Type: 
  Country: None (occurrence: None)
  Receive Date: 20050720
  Receipt Date: 20050711
  Transmission Date: 20060218
  Serious: Yes (Life-Threatening)
  Sender: FDA-Public Use
  Company Number: GXKR2005GB01321

PATIENT
  Age: 73 Year
  Sex: Female

DRUGS (4)
  1. AMOXICILLIN [Suspect]
     Indication: LOWER RESPIRATORY TRACT INFECTION
     Dosage: 500 MG, ORAL
     Route: 048
     Dates: start: 20050624, end: 20050624
  2. CLOPIDOGREL BISULFATE [Suspect]
     Indication: MYOCARDIAL ISCHAEMIA
     Dosage: 75 MG,ORAL
     Route: 048
     Dates: start: 20050126
  3. CO-CODAMOL (CODEINE PHOPSHATE, PARACETAMOL) [Concomitant]
  4. SIMVASTATIN [Concomitant]

REACTIONS (4)
  - ANAPHYLACTIC REACTION [None]
  - DRUG INTERACTION [None]
  - STRIDOR [None]
  - URTICARIA [None]
